FAERS Safety Report 7338541-X (Version None)
Quarter: 2011Q1

REPORT INFORMATION
  Report Type: 
  Country: None (occurrence: None)
  Receive Date: 20110308
  Receipt Date: 20110303
  Transmission Date: 20110831
  Serious: Yes (Hospitalization)
  Sender: FDA-Public Use
  Company Number: US-PFIZER INC-2011046150

PATIENT
  Sex: Male
  Weight: 63.492 kg

DRUGS (4)
  1. KEPPRA [Concomitant]
     Dosage: UNK
  2. DECADRON [Concomitant]
     Dosage: UNK
  3. ATIVAN [Concomitant]
     Dosage: UNK
  4. SUNITINIB MALATE [Suspect]
     Indication: BRAIN NEOPLASM MALIGNANT
     Dosage: 50 MG, 1X/DAY
     Route: 048
     Dates: start: 20101209, end: 20101222

REACTIONS (1)
  - CEREBROVASCULAR ACCIDENT [None]
